FAERS Safety Report 23262774 (Version 2)
Quarter: 2023Q4

REPORT INFORMATION
  Report Type: Spontaneous
  Country: CA (occurrence: US)
  Receive Date: 20231205
  Receipt Date: 20231219
  Transmission Date: 20240110
  Serious: Yes (Other)
  Sender: FDA-Public Use
  Company Number: CA-OTSUKA-2023_031171

PATIENT
  Sex: Female
  Weight: 52.16 kg

DRUGS (2)
  1. ABILIFY [Suspect]
     Active Substance: ARIPIPRAZOLE
     Indication: Major depression
     Dosage: 5 MG, QD (ONCE A DAY IN THE MORNING)
     Route: 048
  2. ABILIFY [Suspect]
     Active Substance: ARIPIPRAZOLE
     Indication: Adjuvant therapy
     Dosage: 8 MG
     Route: 048

REACTIONS (17)
  - Compartment syndrome [Not Recovered/Not Resolved]
  - Diplegia [Not Recovered/Not Resolved]
  - Pneumonia [Unknown]
  - Loss of consciousness [Unknown]
  - Myocardial infarction [Unknown]
  - Seizure [Unknown]
  - Rhabdomyolysis [Not Recovered/Not Resolved]
  - Complex regional pain syndrome [Not Recovered/Not Resolved]
  - Head injury [Unknown]
  - Peroneal nerve palsy [Not Recovered/Not Resolved]
  - Orthosis user [Not Recovered/Not Resolved]
  - Urinary tract infection [Unknown]
  - Palpitations [Unknown]
  - Fall [Unknown]
  - Constipation [Unknown]
  - Homeless [Unknown]
  - Economic problem [Unknown]

NARRATIVE: CASE EVENT DATE: 20160101
